FAERS Safety Report 10524563 (Version 2)
Quarter: 2014Q4

REPORT INFORMATION
  Report Type: Spontaneous
  Country: PL (occurrence: PL)
  Receive Date: 20141017
  Receipt Date: 20141017
  Transmission Date: 20150528
  Serious: Yes (Other)
  Sender: FDA-Public Use
  Company Number: PL-ABBVIE-13P-129-1153498-00

PATIENT
  Age: 64 Year
  Sex: Female

DRUGS (1)
  1. LIPANTHYL 267 M [Suspect]
     Active Substance: FENOFIBRATE
     Indication: LIP DISORDER
     Route: 065
     Dates: start: 201209, end: 20130907

REACTIONS (4)
  - Asthenia [Recovered/Resolved]
  - Purulence [None]
  - Pulmonary mass [Not Recovered/Not Resolved]
  - Lung disorder [Not Recovered/Not Resolved]

NARRATIVE: CASE EVENT DATE: 201211
